FAERS Safety Report 17822914 (Version 1)
Quarter: 2020Q2

REPORT INFORMATION
  Report Type: Spontaneous
  Country: HR (occurrence: HR)
  Receive Date: 20200526
  Receipt Date: 20200526
  Transmission Date: 20200714
  Serious: Yes (Death, Other)
  Sender: FDA-Public Use
  Company Number: HR-TEVA-2020-HR-1239399

PATIENT
  Age: 40 Year
  Sex: Female

DRUGS (29)
  1. RITUXIMAB. [Suspect]
     Active Substance: RITUXIMAB
     Indication: DIFFUSE LARGE B-CELL LYMPHOMA
     Dosage: FIVE CYCLES OF R-CHOEP REGIMEN
     Route: 065
  2. DIFLAMM [Suspect]
     Active Substance: BENZYDAMINE
     Indication: MOUTH ULCERATION
     Dosage: 3M
     Route: 048
  3. CYCLOPHOSPHAMIDE. [Suspect]
     Active Substance: CYCLOPHOSPHAMIDE
     Indication: DIFFUSE LARGE B-CELL LYMPHOMA
     Dosage: FIVE CYCLES OF R-CHOEP REGIMEN
     Route: 065
  4. METHYLPREDNISOLONE. [Suspect]
     Active Substance: METHYLPREDNISOLONE
     Dosage: THREE CYCLES OF R-CHEVP REGIMEN
     Route: 065
  5. GELCLAIR (ENOXOLONE\HYALURONATE SODIUM\POVIDONE) [Suspect]
     Active Substance: ENOXOLONE\HYALURONATE SODIUM\POVIDONE
     Indication: MOUTH ULCERATION
     Route: 048
  6. BELODERM [Suspect]
     Active Substance: BETAMETHASONE DIPROPIONATE
     Indication: MOUTH ULCERATION
     Route: 048
  7. CERVEDILOL [Concomitant]
     Route: 065
  8. DOXORUBICIN [Suspect]
     Active Substance: DOXORUBICIN
     Indication: DIFFUSE LARGE B-CELL LYMPHOMA
     Dosage: FIVE CYCLES OF R-CHOEP REGIMEN
     Route: 065
  9. THIOGUANINE [Suspect]
     Active Substance: THIOGUANINE
     Indication: MYELODYSPLASTIC SYNDROME
     Dosage: SHORT COURSE
     Route: 065
  10. FLUCONAZOLE. [Concomitant]
     Active Substance: FLUCONAZOLE
     Indication: INFECTION PROPHYLAXIS
     Route: 065
  11. DOXORUBICIN [Suspect]
     Active Substance: DOXORUBICIN
     Dosage: THREE CYCLES OF R-CHEVP REGIMEN
     Route: 065
  12. METHYLPREDNISOLONE. [Suspect]
     Active Substance: METHYLPREDNISOLONE
     Indication: DIFFUSE LARGE B-CELL LYMPHOMA
     Dosage: FIVE CYCLES OF R-CHOEP REGIMEN
     Route: 065
  13. ETOPOSIDE. [Suspect]
     Active Substance: ETOPOSIDE
     Indication: DIFFUSE LARGE B-CELL LYMPHOMA
     Dosage: FIVE CYCLES OF R-CHOEP REGIMEN
     Route: 065
  14. FURSEMIDE [Concomitant]
     Active Substance: FUROSEMIDE
     Route: 065
  15. RITUXIMAB. [Suspect]
     Active Substance: RITUXIMAB
     Dosage: THREE CYCLES OF R-CHEVP REGIMEN
     Route: 065
  16. CYCLOPHOSPHAMIDE. [Suspect]
     Active Substance: CYCLOPHOSPHAMIDE
     Dosage: THREE CYCLES OF R-CHEVP REGIMEN
     Route: 065
  17. ETOPOSIDE. [Suspect]
     Active Substance: ETOPOSIDE
     Dosage: THREE CYCLES OF R-CHEVP REGIMEN
     Route: 065
  18. LANITOP [Concomitant]
     Active Substance: METILDIGOXIN
     Route: 065
  19. ALDACTONE [Concomitant]
     Active Substance: SPIRONOLACTONE
     Route: 065
  20. DIFLUCAN [Concomitant]
     Active Substance: FLUCONAZOLE
     Route: 065
  21. VINCRISTINE [Suspect]
     Active Substance: VINCRISTINE
     Indication: DIFFUSE LARGE B-CELL LYMPHOMA
     Dosage: FIVE CYCLES OF R-CHOEP REGIMEN
     Route: 065
  22. VINBLASTINE [Suspect]
     Active Substance: VINBLASTINE
     Indication: DIFFUSE LARGE B-CELL LYMPHOMA
     Dosage: THREE CYCLES OF R-CHEVP REGIMEN
     Route: 065
  23. CURASEPT /02354501/ [Suspect]
     Active Substance: ASCORBIC ACID\CHLORHEXIDINE
     Indication: MOUTH ULCERATION
     Dosage: MOUTHWASH; THREE TIMES A DAY
     Route: 048
  24. DOLOKAINE [Suspect]
     Active Substance: LIDOCAINE
     Indication: MOUTH ULCERATION
     Route: 048
  25. AZACITIDINE. [Concomitant]
     Active Substance: AZACITIDINE
     Indication: ACUTE MYELOID LEUKAEMIA
     Dosage: THREE CYCLES
     Route: 065
  26. ACYCLOVIR. [Concomitant]
     Active Substance: ACYCLOVIR
     Indication: INFECTION PROPHYLAXIS
     Route: 065
  27. TRITACE [Concomitant]
     Active Substance: RAMIPRIL
     Route: 065
  28. CIPROFLOXACIN. [Concomitant]
     Active Substance: CIPROFLOXACIN
     Indication: INFECTION PROPHYLAXIS
     Route: 065
  29. CONTROLOC [Concomitant]
     Active Substance: PANTOPRAZOLE SODIUM
     Route: 065

REACTIONS (12)
  - Congestive cardiomyopathy [Unknown]
  - Drug ineffective [Unknown]
  - Neutropenia [Fatal]
  - Aspergillus infection [Fatal]
  - Acute myeloid leukaemia [Unknown]
  - Stenotrophomonas infection [Unknown]
  - Myelodysplastic syndrome [Unknown]
  - Toxic neuropathy [Unknown]
  - Enterobacter infection [Unknown]
  - Sinusitis [Fatal]
  - Mouth ulceration [Not Recovered/Not Resolved]
  - Staphylococcal sepsis [Fatal]
